FAERS Safety Report 6023128-1 (Version None)
Quarter: 2008Q4

REPORT INFORMATION
  Report Type: 
  Country: None (occurrence: None)
  Receive Date: 20081222
  Receipt Date: 20080928
  Transmission Date: 20090506
  Serious: No
  Sender: FDA-Public Use
  Company Number: ALL1-2008-02728

PATIENT
  Age: 16 Year
  Sex: Female
  Weight: 49.9 kg

DRUGS (6)
  1. VYVANSE [Suspect]
     Indication: ATTENTION DEFICIT/HYPERACTIVITY DISORDER
     Dosage: 50 MG, 1X/DAY:QD, ORAL
     Route: 048
     Dates: start: 20080801
  2. LUVOX [Concomitant]
  3. CLONIDINE [Concomitant]
  4. STRATTERA [Concomitant]
  5. MULTIVITAMIN /00831701/ (VITAMINS NOS) [Concomitant]
  6. OMEGA-3 /00931501/ (DOCOSAHEXANOIC ACID, EICOSAPENTAENOIC ACID) [Concomitant]

REACTIONS (6)
  - ABNORMAL BEHAVIOUR [None]
  - AGGRESSION [None]
  - BIPOLAR DISORDER [None]
  - CONDITION AGGRAVATED [None]
  - FLASHBACK [None]
  - OFF LABEL USE [None]
